FAERS Safety Report 20617848 (Version 2)
Quarter: 2025Q2

REPORT INFORMATION
  Report Type: Report from Study
  Country: DE (occurrence: DE)
  Receive Date: 20220321
  Receipt Date: 20250514
  Transmission Date: 20250717
  Serious: Yes (Death, Hospitalization)
  Sender: PFIZER
  Company Number: DE-PFM-2021-02305

PATIENT
  Age: 78 Year
  Sex: Male

DRUGS (10)
  1. BRAFTOVI [Suspect]
     Active Substance: ENCORAFENIB
     Indication: Malignant melanoma
     Dosage: 225 MG, 1X/DAY
     Route: 048
     Dates: start: 20200502
  2. BRAFTOVI [Suspect]
     Active Substance: ENCORAFENIB
     Dosage: 375 MG, 1 X PER DAY
     Route: 048
     Dates: start: 20200623
  3. BRAFTOVI [Suspect]
     Active Substance: ENCORAFENIB
     Dosage: 450 MG, 1 X PER DAY
     Route: 048
     Dates: start: 20200708, end: 20201008
  4. MEKTOVI [Suspect]
     Active Substance: BINIMETINIB
     Indication: Malignant melanoma
     Dosage: 15 MG 3 X PER DAY
     Route: 048
     Dates: start: 20200502
  5. MEKTOVI [Suspect]
     Active Substance: BINIMETINIB
     Dosage: 30 MG, BID (2/DAY)
     Route: 048
     Dates: start: 20200623
  6. MEKTOVI [Suspect]
     Active Substance: BINIMETINIB
     Dosage: 45 MG, BID (2/DAY)
     Route: 048
     Dates: start: 20200708, end: 20201008
  7. CANDESARTAN CILEXETIL\HYDROCHLOROTHIAZIDE [Concomitant]
     Active Substance: CANDESARTAN CILEXETIL\HYDROCHLOROTHIAZIDE
     Route: 065
  8. BISOPROLOL FUMARATE [Concomitant]
     Active Substance: BISOPROLOL FUMARATE
     Route: 065
  9. XARELTO [Concomitant]
     Active Substance: RIVAROXABAN
     Route: 065
  10. AMLODIPINE BESYLATE [Concomitant]
     Active Substance: AMLODIPINE BESYLATE
     Route: 065

REACTIONS (5)
  - Confusional state [Fatal]
  - Memory impairment [Fatal]
  - Asthenia [Fatal]
  - Off label use [Unknown]
  - Product use issue [Recovered/Resolved]

NARRATIVE: CASE EVENT DATE: 20200502
